FAERS Safety Report 23517025 (Version 1)
Quarter: 2024Q1

REPORT INFORMATION
  Report Type: Spontaneous
  Country: CN (occurrence: CN)
  Receive Date: 20240213
  Receipt Date: 20240213
  Transmission Date: 20240410
  Serious: Yes (Other)
  Sender: FDA-Public Use
  Company Number: CN-ROCHE-3502192

PATIENT
  Sex: Male
  Weight: 67.199 kg

DRUGS (4)
  1. CAPECITABINE [Suspect]
     Active Substance: CAPECITABINE
     Indication: Rectal cancer
     Dosage: 5 DAYS/WEEK
     Route: 048
     Dates: start: 20230216
  2. CAPECITABINE [Suspect]
     Active Substance: CAPECITABINE
     Indication: Rectal cancer
     Dosage: ON 27/MAR/2023, HE RECEIVED MOST RECENT DOSE OF CAPECITABINE
     Route: 048
     Dates: start: 20230327
  3. ATEZOLIZUMAB [Suspect]
     Active Substance: ATEZOLIZUMAB
     Indication: Rectal cancer
     Dosage: INTRAVENOUS DRIP
     Route: 042
     Dates: start: 20230412
  4. ATEZOLIZUMAB [Suspect]
     Active Substance: ATEZOLIZUMAB
     Indication: Rectal cancer
     Dosage: ON 13/JUN/2023, HE RECEIVED MOST RECENT DOSE OF ATEZOLIZUMAB
     Route: 042
     Dates: start: 20230613

REACTIONS (1)
  - Pneumonitis [Not Recovered/Not Resolved]

NARRATIVE: CASE EVENT DATE: 20230615
